FAERS Safety Report 17301114 (Version 14)
Quarter: 2022Q2

REPORT INFORMATION
  Report Type: Spontaneous
  Country: US (occurrence: US)
  Receive Date: 20200122
  Receipt Date: 20220510
  Transmission Date: 20220721
  Serious: No
  Sender: FDA-Public Use
  Company Number: US-PFIZER INC-2020030255

PATIENT
  Age: 87 Year
  Sex: Female
  Weight: 61.23 kg

DRUGS (4)
  1. PREMARIN [Suspect]
     Active Substance: ESTROGENS, CONJUGATED
     Indication: Hot flush
     Dosage: 2 G (FULL APPLICATOR), 3X/WEEK
     Route: 067
  2. PREMARIN [Suspect]
     Active Substance: ESTROGENS, CONJUGATED
     Indication: Insomnia
     Dosage: 1 G, 2X/WEEK
     Route: 067
  3. PREMARIN [Suspect]
     Active Substance: ESTROGENS, CONJUGATED
     Indication: Vulvovaginal dryness
  4. LEVOTHYROXINE [Concomitant]
     Active Substance: LEVOTHYROXINE
     Dosage: 75 UG, UNK

REACTIONS (8)
  - Sleep disorder [Unknown]
  - Migraine [Unknown]
  - Constipation [Unknown]
  - Pain in extremity [Unknown]
  - Headache [Unknown]
  - Memory impairment [Unknown]
  - Off label use [Unknown]
  - Product prescribing error [Unknown]
